FAERS Safety Report 18845976 (Version 4)
Quarter: 2021Q3

REPORT INFORMATION
  Report Type: Spontaneous
  Country: US (occurrence: US)
  Receive Date: 20210204
  Receipt Date: 20210907
  Transmission Date: 20211014
  Serious: No
  Sender: FDA-Public Use
  Company Number: US-PFIZER INC-2019557456

PATIENT
  Age: 64 Year
  Sex: Female

DRUGS (2)
  1. LYRICA [Suspect]
     Active Substance: PREGABALIN
     Indication: LUMBAR RADICULOPATHY
     Dosage: UNK, 2X/DAY
  2. LYRICA [Suspect]
     Active Substance: PREGABALIN
     Indication: BACK PAIN
     Dosage: 75 MG, 3X/DAY (1 CAPSULE THREE TIMES A DAY 90 DAYS)
     Route: 048

REACTIONS (5)
  - Intentional product use issue [Unknown]
  - Sleep disorder due to general medical condition, insomnia type [Unknown]
  - Formication [Unknown]
  - Arthralgia [Unknown]
  - Extra dose administered [Unknown]
